FAERS Safety Report 18611255 (Version 1)
Quarter: 2020Q4

REPORT INFORMATION
  Report Type: Spontaneous
  Country: SA (occurrence: SA)
  Receive Date: 20201214
  Receipt Date: 20201214
  Transmission Date: 20210114
  Serious: Yes (Life-Threatening, Hospitalization, Other)
  Sender: FDA-Public Use
  Company Number: SA-LUPIN PHARMACEUTICALS INC.-2020-10252

PATIENT
  Age: 37 Year
  Sex: Female

DRUGS (1)
  1. AZITHROMYCIN ANHYDROUS. [Suspect]
     Active Substance: AZITHROMYCIN ANHYDROUS
     Indication: TONSILLITIS
     Dosage: 2 DOSAGE FORM, QD (FORMULATION: CAPSULE)
     Route: 048

REACTIONS (8)
  - Ventricular fibrillation [Recovering/Resolving]
  - Cardiac arrest [Recovering/Resolving]
  - Mitral valve incompetence [Recovering/Resolving]
  - Drug ineffective [Unknown]
  - Tricuspid valve incompetence [Recovering/Resolving]
  - Long QT syndrome [Recovering/Resolving]
  - Ventricular tachycardia [Recovering/Resolving]
  - Torsade de pointes [Recovering/Resolving]
